FAERS Safety Report 7000069-4 (Version None)
Quarter: 2010Q3

REPORT INFORMATION
  Report Type: 
  Country: None (occurrence: None)
  Receive Date: 20100920
  Receipt Date: 20100503
  Transmission Date: 20110219
  Serious: No
  Sender: FDA-Public Use
  Company Number: US-ASTRAZENECA-2010SE14390

PATIENT
  Age: 33 Year
  Sex: Female

DRUGS (5)
  1. SEROQUEL XR [Suspect]
     Indication: BIPOLAR DISORDER
     Route: 048
  2. SEROQUEL XR [Suspect]
     Route: 048
  3. SEROQUEL XR [Suspect]
     Route: 048
     Dates: start: 20100323
  4. KLONOPIN [Concomitant]
     Route: 065
  5. LAMICTAL [Concomitant]
     Route: 065

REACTIONS (3)
  - MUSCLE TIGHTNESS [None]
  - MUSCLE TWITCHING [None]
  - TRISMUS [None]
